APPROVED DRUG PRODUCT: TICAGRELOR
Active Ingredient: TICAGRELOR
Strength: 90MG
Dosage Form/Route: TABLET;ORAL
Application: A208390 | Product #002 | TE Code: AB
Applicant: WATSON LABORATORIES INC
Approved: Sep 4, 2018 | RLD: No | RS: No | Type: RX